FAERS Safety Report 22823613 (Version 2)
Quarter: 2024Q1

REPORT INFORMATION
  Report Type: Spontaneous
  Country: US (occurrence: US)
  Receive Date: 20230815
  Receipt Date: 20240223
  Transmission Date: 20240409
  Serious: No
  Sender: FDA-Public Use
  Company Number: US-MYLANLABS-2023M1084927

PATIENT
  Age: 55 Year
  Sex: Male

DRUGS (4)
  1. SEMGLEE (INSULIN GLARGINE-YFGN) [Suspect]
     Active Substance: INSULIN GLARGINE-YFGN
     Indication: Type 2 diabetes mellitus
     Dosage: 75 INTERNATIONAL UNIT, QD (75 UNITS EVERYDAY ONCE DAILY)
     Route: 058
     Dates: start: 202201
  2. SEMGLEE (INSULIN GLARGINE-YFGN) [Suspect]
     Active Substance: INSULIN GLARGINE-YFGN
     Dosage: 75 INTERNATIONAL UNIT, QD (75 UNITS EVERYDAY ONCE DAILY)
     Route: 058
     Dates: start: 202201
  3. SEMGLEE (INSULIN GLARGINE-YFGN) [Suspect]
     Active Substance: INSULIN GLARGINE-YFGN
     Dosage: 75 INTERNATIONAL UNIT, QD (75 UNITS EVERYDAY ONCE DAILY)
     Route: 058
     Dates: start: 202201
  4. DEVICE [Suspect]
     Active Substance: DEVICE
     Indication: Type 2 diabetes mellitus

REACTIONS (3)
  - Injection site atrophy [Unknown]
  - Injection site hypertrophy [Unknown]
  - Device issue [Unknown]

NARRATIVE: CASE EVENT DATE: 20230701
